FAERS Safety Report 6871657-0 (Version None)
Quarter: 2010Q3

REPORT INFORMATION
  Report Type: 
  Country: None (occurrence: None)
  Receive Date: 20100723
  Receipt Date: 20100714
  Transmission Date: 20110219
  Serious: Yes (Hospitalization)
  Sender: FDA-Public Use
  Company Number: GXKR2010US07822

PATIENT
  Age: 4 Year
  Sex: Male

DRUGS (1)
  1. CLONAZEPAM [Suspect]
     Route: 065

REACTIONS (10)
  - ATAXIA [None]
  - ATRIOVENTRICULAR BLOCK FIRST DEGREE [None]
  - ATRIOVENTRICULAR BLOCK SECOND DEGREE [None]
  - GAIT DISTURBANCE [None]
  - MECHANICAL VENTILATION [None]
  - MIOSIS [None]
  - MOANING [None]
  - OVERDOSE [None]
  - RESPIRATORY DEPRESSION [None]
  - UNRESPONSIVE TO STIMULI [None]
